FAERS Safety Report 9157754 (Version 1)
Quarter: 2013Q1

REPORT INFORMATION
  Report Type: Spontaneous
  Country: US (occurrence: None)
  Receive Date: 20130311
  Receipt Date: 20130311
  Transmission Date: 20140127
  Serious: Yes (Other)
  Sender: FDA-Public Use
  Company Number: None

PATIENT
  Age: 25 Year
  Sex: Female
  Weight: 83.92 kg

DRUGS (1)
  1. SERTRALINE [Suspect]
     Indication: GENERALISED ANXIETY DISORDER
     Route: 048
     Dates: start: 20090725, end: 20120405

REACTIONS (12)
  - Infection susceptibility increased [None]
  - Skin infection [None]
  - Skin papilloma [None]
  - Infectious mononucleosis [None]
  - Sinusitis [None]
  - Fatigue [None]
  - Activities of daily living impaired [None]
  - Hypersomnia [None]
  - Bedridden [None]
  - Weight increased [None]
  - Nasopharyngitis [None]
  - Exercise tolerance decreased [None]
